FAERS Safety Report 4380723-3 (Version None)
Quarter: 2004Q2

REPORT INFORMATION
  Report Type: 
  Country: None (occurrence: None)
  Receive Date: 20040618
  Receipt Date: 20040608
  Transmission Date: 20050107
  Serious: Yes (Other)
  Sender: FDA-Public Use
  Company Number: PHFR2004GB02388

PATIENT
  Age: 20 Year
  Sex: Female

DRUGS (3)
  1. CLOZARIL [Suspect]
     Dosage: 150MG/ IN ERROR
     Route: 048
     Dates: start: 20040608, end: 20040608
  2. PAROXETINE HCL [Concomitant]
     Route: 065
  3. OLANZAPINE [Concomitant]
     Route: 065

REACTIONS (3)
  - ACCIDENTAL EXPOSURE [None]
  - OVERDOSE [None]
  - SEDATION [None]
